FAERS Safety Report 14361590 (Version 1)
Quarter: 2018Q1

REPORT INFORMATION
  Report Type: Other
  Country: US (occurrence: US)
  Receive Date: 20180108
  Receipt Date: 20180108
  Transmission Date: 20180509
  Serious: No
  Sender: FDA-Public Use
  Company Number: US-LUPIN PHARMACEUTICALS INC.-2017-05948

PATIENT

DRUGS (2)
  1. DULOXETINE DELAYED-RELEASE CAPSULES [Suspect]
     Active Substance: DULOXETINE
     Indication: ANXIETY
  2. DULOXETINE DELAYED-RELEASE CAPSULES [Suspect]
     Active Substance: DULOXETINE
     Indication: DEPRESSION
     Dosage: UNK
     Route: 065
     Dates: start: 2014

REACTIONS (6)
  - Dizziness [Unknown]
  - Product substitution issue [Unknown]
  - Drug ineffective [Not Recovered/Not Resolved]
  - Balance disorder [Unknown]
  - Fibromyalgia [Not Recovered/Not Resolved]
  - Somnolence [Unknown]

NARRATIVE: CASE EVENT DATE: 2014
